FAERS Safety Report 26148662 (Version 1)
Quarter: 2025Q4

REPORT INFORMATION
  Report Type: Spontaneous
  Country: EU (occurrence: EU)
  Receive Date: 20251212
  Receipt Date: 20251212
  Transmission Date: 20260118
  Serious: Yes (Death)
  Sender: ROCHE
  Company Number: EU-ROCHE-10000348849

PATIENT
  Age: 69 Year
  Sex: Female

DRUGS (3)
  1. MOSUNETUZUMAB [Suspect]
     Active Substance: MOSUNETUZUMAB
     Indication: Follicular lymphoma
     Dosage: ON 31-JAN-2025, SHE RECEIVED THE MOST RECENT DOSE OF MOSUNETUZUMAB PRIOR TO EVENT.?ON 09-APR-2025 SHE RECEIVED THE MOST RECENT DOSE OF MOSUNETUZUMAB PRIOR TO SEPTIC SHOCK.
     Route: 042
     Dates: start: 20241105
  2. ENCORAFENIB [Concomitant]
     Active Substance: ENCORAFENIB
     Indication: Malignant melanoma
  3. BIMINETENIB [Concomitant]
     Indication: Malignant melanoma

REACTIONS (2)
  - Influenza [Recovered/Resolved]
  - Septic shock [Fatal]

NARRATIVE: CASE EVENT DATE: 20250201
